FAERS Safety Report 24183690 (Version 1)
Quarter: 2024Q3

REPORT INFORMATION
  Report Type: Spontaneous
  Country: GB (occurrence: GB)
  Receive Date: 20240807
  Receipt Date: 20240807
  Transmission Date: 20241016
  Serious: Yes (Other)
  Sender: HIKMA
  Company Number: None

PATIENT
  Age: 59 Year
  Sex: Female

DRUGS (1)
  1. GEMCITABINE [Suspect]
     Active Substance: GEMCITABINE
     Indication: Product used for unknown indication
     Dosage: 888 MILLIGRAM, OVER THE PERIOD OF 30 MINUTES
     Route: 042

REACTIONS (3)
  - Diarrhoea [Unknown]
  - Urinary tract infection [Unknown]
  - Neuropathy peripheral [Not Recovered/Not Resolved]
